FAERS Safety Report 4509828-0 (Version None)
Quarter: 2004Q4

REPORT INFORMATION
  Report Type: 
  Country: None (occurrence: None)
  Receive Date: 20041119
  Receipt Date: 20041028
  Transmission Date: 20050328
  Serious: Yes (Hospitalization, Other)
  Sender: FDA-Public Use
  Company Number: USA041082484

PATIENT
  Age: 58 Year
  Sex: Male
  Weight: 61 kg

DRUGS (8)
  1. HUMALOG [Suspect]
     Dates: start: 20010101
  2. HUMULIN R [Suspect]
     Dates: start: 19690101, end: 20010101
  3. HUMULIN N [Suspect]
     Dates: start: 19690101, end: 20010101
  4. LANTUS [Concomitant]
  5. PHENOBARBITAL TAB [Concomitant]
  6. DEPAKOTE [Concomitant]
  7. XANAX [Concomitant]
  8. METHADONE [Concomitant]

REACTIONS (12)
  - ANXIETY [None]
  - BLOOD GLUCOSE DECREASED [None]
  - BLOOD GLUCOSE INCREASED [None]
  - DEPRESSION [None]
  - DRUG ABUSER [None]
  - HEPATITIS C [None]
  - KETOACIDOSIS [None]
  - MENTAL DISORDER [None]
  - NEUROPATHY [None]
  - PAIN IN EXTREMITY [None]
  - PARAESTHESIA [None]
  - PHARMACEUTICAL PRODUCT COMPLAINT [None]
